FAERS Safety Report 7179164-5 (Version None)
Quarter: 2010Q4

REPORT INFORMATION
  Report Type: 
  Country: None (occurrence: None)
  Receive Date: 20101217
  Receipt Date: 20101217
  Transmission Date: 20110411
  Serious: Yes (Other)
  Sender: FDA-Public Use
  Company Number: None

PATIENT
  Age: 77 Year
  Sex: Male
  Weight: 78.9259 kg

DRUGS (4)
  1. PROCRIT [Suspect]
     Indication: ANAEMIA
     Dosage: 20,000 UNITS SUBQ EVERY 2 WEEKS
     Route: 058
  2. ZOLIPIDEN [Concomitant]
  3. FUROSEMIDE [Concomitant]
  4. CARVEDILOL [Concomitant]

REACTIONS (1)
  - DYSPNOEA [None]
